FAERS Safety Report 7501391-5 (Version None)
Quarter: 2011Q2

REPORT INFORMATION
  Report Type: 
  Country: None (occurrence: None)
  Receive Date: 20110524
  Receipt Date: 20110512
  Transmission Date: 20111010
  Serious: Yes (Hospitalization)
  Sender: FDA-Public Use
  Company Number: US-BAYER-201039944NA

PATIENT
  Age: 28 Year
  Sex: Female
  Weight: 79.365 kg

DRUGS (8)
  1. IBUPROFEN [Concomitant]
     Dosage: UNK
     Dates: start: 20050101
  2. FERROUS SULFATE TAB [Concomitant]
     Indication: BLOOD IRON DECREASED
     Dosage: UNK UNK, PRN DURING PREGNANCIES
     Dates: start: 20010101
  3. YAZ [Suspect]
     Indication: PRODUCT USED FOR UNKNOWN INDICATION
     Route: 048
     Dates: start: 20050701, end: 20061115
  4. YASMIN [Suspect]
     Indication: ORAL CONTRACEPTION
     Dosage: REPORTED IN EXTRACTION QUESTIONNAIRE
     Route: 048
     Dates: start: 20050701, end: 20061101
  5. ACETAMINOPHEN [Concomitant]
  6. YASMIN [Suspect]
     Dosage: STOP DATE REPORTED IN MEDICAL RECORDS
     Dates: end: 20061030
  7. AZITHROMYCIN [Concomitant]
  8. AMOXICILLIN [Concomitant]

REACTIONS (4)
  - PULMONARY EMBOLISM [None]
  - DYSPNOEA [None]
  - PLEURITIC PAIN [None]
  - PAIN [None]
